FAERS Safety Report 7270002-9 (Version None)
Quarter: 2011Q1

REPORT INFORMATION
  Report Type: 
  Country: None (occurrence: None)
  Receive Date: 20110202
  Receipt Date: 20110125
  Transmission Date: 20110831
  Serious: No
  Sender: FDA-Public Use
  Company Number: BR-ROCHE-755773

PATIENT
  Age: 28 Year
  Sex: Female

DRUGS (2)
  1. NUVARING [Concomitant]
     Indication: CONTRACEPTION
     Route: 067
  2. ROACUTAN [Suspect]
     Indication: ACNE
     Route: 065
     Dates: start: 20101001, end: 20110101

REACTIONS (2)
  - PREGNANCY [None]
  - NO ADVERSE EVENT [None]
